FAERS Safety Report 8396050-3 (Version None)
Quarter: 2012Q2

REPORT INFORMATION
  Report Type: 
  Country: None (occurrence: None)
  Receive Date: 20120530
  Receipt Date: 20120521
  Transmission Date: 20120825
  Serious: Yes (Other)
  Sender: FDA-Public Use
  Company Number: IE-ROCHE-1072210

PATIENT
  Sex: Male

DRUGS (1)
  1. RANIBIZUMAB [Suspect]
     Indication: PRODUCT USED FOR UNKNOWN INDICATION
     Dosage: 10 MG PER ML
     Route: 050

REACTIONS (2)
  - INTRAOCULAR PRESSURE INCREASED [None]
  - BLINDNESS TRANSIENT [None]
